FAERS Safety Report 20667057 (Version 3)
Quarter: 2022Q4

REPORT INFORMATION
  Report Type: Report from Study
  Country: FR (occurrence: FR)
  Receive Date: 20220404
  Receipt Date: 20221115
  Transmission Date: 20230112
  Serious: Yes (Other)
  Sender: FDA-Public Use
  Company Number: FR-JNJFOC-20210939673

PATIENT
  Age: 29 Year
  Sex: Male
  Weight: 94 kg

DRUGS (2)
  1. STELARA [Suspect]
     Active Substance: USTEKINUMAB
     Indication: Crohn^s disease
     Route: 040
     Dates: start: 20210510
  2. PREDNISONE [Concomitant]
     Active Substance: PREDNISONE
     Indication: Arthralgia
     Dosage: 60 (UNITS UNSPECIFIED)
     Route: 065
     Dates: start: 20210323

REACTIONS (2)
  - Ankylosing spondylitis [Not Recovered/Not Resolved]
  - Rheumatic disorder [Unknown]

NARRATIVE: CASE EVENT DATE: 20210601
